APPROVED DRUG PRODUCT: CEPHALEXIN
Active Ingredient: CEPHALEXIN
Strength: EQ 250MG BASE
Dosage Form/Route: TABLET;ORAL
Application: A062826 | Product #001
Applicant: BARR LABORATORIES INC
Approved: Aug 17, 1987 | RLD: No | RS: No | Type: DISCN